FAERS Safety Report 7457240-7 (Version None)
Quarter: 2011Q2

REPORT INFORMATION
  Report Type: 
  Country: None (occurrence: None)
  Receive Date: 20110504
  Receipt Date: 20110502
  Transmission Date: 20111010
  Serious: No
  Sender: FDA-Public Use
  Company Number: US-PFIZER INC-2011094448

PATIENT
  Sex: Female
  Weight: 68 kg

DRUGS (3)
  1. HYDROCODONE [Concomitant]
     Dosage: 10 MG, UNK
  2. NEURONTIN [Suspect]
     Indication: BACK PAIN
     Dosage: 1800 MG, 1X/DAY
     Route: 048
  3. LAMICTAL [Concomitant]
     Dosage: UNK

REACTIONS (1)
  - MALAISE [None]
